FAERS Safety Report 21921523 (Version 2)
Quarter: 2023Q2

REPORT INFORMATION
  Report Type: Spontaneous
  Country: US (occurrence: US)
  Receive Date: 20230127
  Receipt Date: 20230627
  Transmission Date: 20230722
  Serious: Yes (Other)
  Sender: FDA-Public Use
  Company Number: US-JNJFOC-20230146561

PATIENT
  Sex: Male

DRUGS (8)
  1. TYLENOL EXTRA STRENGTH [Suspect]
     Active Substance: ACETAMINOPHEN
     Indication: Product used for unknown indication
     Route: 064
     Dates: start: 199903, end: 199911
  2. ACETAMINOPHEN [Suspect]
     Active Substance: ACETAMINOPHEN
     Indication: Migraine
     Dosage: TEN TIMES PER WEEK, WAS IN FIRST, SECOND AND THIRD TRIMESTER
     Route: 064
     Dates: start: 1999, end: 1999
  3. ACETAMINOPHEN [Suspect]
     Active Substance: ACETAMINOPHEN
     Indication: Arthritis
  4. APAP [Suspect]
     Active Substance: ACETAMINOPHEN
     Indication: Migraine
     Dosage: TEN TIMES PER WEEK, WAS IN FIRST, SECOND AND THIRD TRIMESTER
     Route: 064
     Dates: start: 1999, end: 1999
  5. APAP [Suspect]
     Active Substance: ACETAMINOPHEN
     Indication: Arthritis
  6. SINGULAIR [Concomitant]
     Active Substance: MONTELUKAST SODIUM
     Indication: Asthma
     Route: 064
     Dates: start: 1992, end: 2004
  7. ADVAIR HFA [Concomitant]
     Active Substance: FLUTICASONE PROPIONATE\SALMETEROL XINAFOATE
     Indication: Asthma
     Route: 064
     Dates: start: 1992, end: 2004
  8. ALBUTEROL [Concomitant]
     Active Substance: ALBUTEROL
     Indication: Asthma
     Route: 064
     Dates: start: 1992, end: 2004

REACTIONS (2)
  - Autism spectrum disorder [Unknown]
  - Foetal exposure during pregnancy [Unknown]

NARRATIVE: CASE EVENT DATE: 19990101
